FAERS Safety Report 9637926 (Version 2)
Quarter: 2013Q4

REPORT INFORMATION
  Report Type: Report from Study
  Country: US (occurrence: US)
  Receive Date: 20131022
  Receipt Date: 20131029
  Transmission Date: 20140711
  Serious: Yes (Death)
  Sender: FDA-Public Use
  Company Number: US-ROCHE-1292197

PATIENT
  Sex: Female

DRUGS (7)
  1. AVASTIN [Suspect]
     Indication: SMALL INTESTINE CARCINOMA
     Route: 065
     Dates: start: 20100629
  2. AVASTIN [Suspect]
     Route: 065
     Dates: start: 20100915
  3. AVASTIN [Suspect]
     Route: 065
     Dates: start: 20101102
  4. CARBOPLATIN [Concomitant]
     Route: 065
     Dates: start: 20100629
  5. CARBOPLATIN [Concomitant]
     Route: 065
     Dates: start: 20100915
  6. CARBOPLATIN [Concomitant]
     Route: 065
     Dates: start: 20101102
  7. XELODA [Concomitant]
     Route: 065
     Dates: start: 20100629

REACTIONS (1)
  - Disease progression [Fatal]
